FAERS Safety Report 11394999 (Version 5)
Quarter: 2017Q2

REPORT INFORMATION
  Report Type: Report from Study
  Country: DE (occurrence: DE)
  Receive Date: 20150819
  Receipt Date: 20170606
  Transmission Date: 20170829
  Serious: Yes (Hospitalization)
  Sender: FDA-Public Use
  Company Number: DE-TEVA-587059ISR

PATIENT
  Age: 58 Year
  Sex: Male
  Weight: 80 kg

DRUGS (2)
  1. TREOSULFAN [Suspect]
     Active Substance: TREOSULFAN
     Indication: STEM CELL TRANSPLANT
     Dosage: 21 GRAM DAILY;
     Route: 042
     Dates: start: 20150719, end: 20150721
  2. FLUDARABIN [Suspect]
     Active Substance: FLUDARABINE PHOSPHATE
     Indication: STEM CELL TRANSPLANT
     Dosage: 62 MILLIGRAM DAILY;
     Route: 042
     Dates: start: 20150717, end: 20150721

REACTIONS (2)
  - Infection [Recovering/Resolving]
  - C-reactive protein increased [Recovered/Resolved]

NARRATIVE: CASE EVENT DATE: 20150813
